FAERS Safety Report 6946240-9 (Version None)
Quarter: 2010Q3

REPORT INFORMATION
  Report Type: 
  Country: None (occurrence: None)
  Receive Date: 20100824
  Receipt Date: 20100809
  Transmission Date: 20110219
  Serious: Yes (Hospitalization)
  Sender: FDA-Public Use
  Company Number: DSA_43709_2010

PATIENT
  Age: 99 Year
  Sex: Female

DRUGS (9)
  1. ENALAPRIL MALEATE [Suspect]
     Indication: CARDIAC FAILURE
     Dosage: (5 MG QD ORAL)
     Route: 048
     Dates: end: 20091128
  2. LACTULOSE [Suspect]
     Indication: CONSTIPATION
     Dosage: (30ML DAILY)
     Dates: end: 20091201
  3. ACETAMINOPHEN [Concomitant]
  4. ASPIRIN [Concomitant]
  5. MALVITONA [Concomitant]
  6. IMPUGAN [Concomitant]
  7. OMEPRAZOLE [Concomitant]
  8. RESULAX [Concomitant]
  9. ZOPICLONE [Concomitant]

REACTIONS (6)
  - BLOOD BICARBONATE DECREASED [None]
  - BLOOD CREATININE INCREASED [None]
  - DEHYDRATION [None]
  - HYPERKALAEMIA [None]
  - NAUSEA [None]
  - SKIN TURGOR DECREASED [None]
